FAERS Safety Report 13167007 (Version 3)
Quarter: 2017Q2

REPORT INFORMATION
  Report Type: Report from Study
  Country: IE (occurrence: IE)
  Receive Date: 20170131
  Receipt Date: 20170522
  Transmission Date: 20170830
  Serious: Yes (Other)
  Sender: FDA-Public Use
  Company Number: PHFR2017IE000846

PATIENT
  Age: 45 Year
  Sex: Female

DRUGS (1)
  1. COSENTYX [Suspect]
     Active Substance: SECUKINUMAB
     Indication: PSORIATIC ARTHROPATHY
     Dosage: 300 MG, UNK
     Route: 058
     Dates: start: 20161207

REACTIONS (7)
  - Weight decreased [Recovered/Resolved]
  - Condition aggravated [Unknown]
  - Menstruation delayed [Unknown]
  - Coeliac disease [Recovering/Resolving]
  - Diarrhoea [Recovered/Resolved]
  - Appetite disorder [Recovered/Resolved]
  - Abdominal discomfort [Unknown]

NARRATIVE: CASE EVENT DATE: 20170110
